FAERS Safety Report 8984742 (Version 1)
Quarter: 2012Q4

REPORT INFORMATION
  Report Type: Spontaneous
  Country: GB (occurrence: None)
  Receive Date: 20121217
  Receipt Date: 20121217
  Transmission Date: 20130627
  Serious: Yes (Disabling)
  Sender: FDA-Public Use
  Company Number: GER/UKI/12/0027028

PATIENT
  Age: 39 Year
  Sex: Female
  Weight: 70 kg

DRUGS (8)
  1. LAMOTRIGINE (LAMOTRIGINE) [Suspect]
     Indication: DRUG USE FOR UNKNOWN INDICATION
     Dates: start: 20120903
  2. CETIRIZINE (CETIRIZINE) [Concomitant]
  3. CITALOPRAM (CITALOPRAM) [Concomitant]
  4. CLOBETASONE (CLOBETASONE BUTYRATE) [Concomitant]
  5. AMOXICILLIN\CLAVULANATE POTASSIUM [Concomitant]
  6. FLUCLOXACILLIN (FLUCLOXACILLIN) [Concomitant]
  7. FUSIDIC ACID(FUSIDIC ACID) [Concomitant]
  8. ULTRABASE (PARAFFIN, LIQUID) [Concomitant]

REACTIONS (2)
  - Scab [None]
  - Rash generalised [None]
